FAERS Safety Report 5223537-4 (Version None)
Quarter: 2007Q1

REPORT INFORMATION
  Report Type: 
  Country: None (occurrence: None)
  Receive Date: 20070125
  Receipt Date: 20070117
  Transmission Date: 20070707
  Serious: Yes (Hospitalization)
  Sender: FDA-Public Use
  Company Number: 163-21880-06100321

PATIENT
  Age: 73 Year
  Sex: Male

DRUGS (9)
  1. REVLIMID [Suspect]
     Indication: MYELOFIBROSIS
     Dosage: 10 + 5 MG, 1 IN 1 D, ORAL
     Route: 048
     Dates: start: 20060707, end: 20060921
  2. REVLIMID [Suspect]
     Indication: MYELOFIBROSIS
     Dosage: 10 + 5 MG, 1 IN 1 D, ORAL
     Route: 048
     Dates: start: 20061026
  3. PREDNISONE TAB [Suspect]
     Indication: MYELOFIBROSIS
  4. DOXAZOSIN (DOXAZOSIN) [Concomitant]
  5. ALLOPURINOL [Concomitant]
  6. ASPIRIN [Concomitant]
  7. EFFEXOR [Concomitant]
  8. MULTI-VITAMINS [Concomitant]
  9. FISH OIL (FISH OIL) [Concomitant]

REACTIONS (8)
  - DIARRHOEA [None]
  - ESCHERICHIA INFECTION [None]
  - GASTRIC ULCER [None]
  - HAEMORRHAGE [None]
  - PROCEDURAL SITE REACTION [None]
  - PRURITUS [None]
  - RASH [None]
  - WOUND INFECTION [None]
